FAERS Safety Report 23520916 (Version 1)
Quarter: 2024Q1

REPORT INFORMATION
  Report Type: Report from Study
  Country: CO (occurrence: CO)
  Receive Date: 20240214
  Receipt Date: 20240214
  Transmission Date: 20240410
  Serious: Yes (Death, Hospitalization, Other)
  Sender: FDA-Public Use
  Company Number: CO-ABBVIE-5637771

PATIENT
  Age: 66 Year
  Sex: Female

DRUGS (23)
  1. VENCLEXTA [Suspect]
     Active Substance: VENETOCLAX
     Indication: Acute myeloid leukaemia
     Dosage: 200 MILLIGRAM?FORM STRENGTH: 100MG
     Route: 048
     Dates: start: 20231109, end: 20231206
  2. VENCLEXTA [Suspect]
     Active Substance: VENETOCLAX
     Indication: Acute myeloid leukaemia
     Dosage: 200 MILLIGRAM
     Route: 048
     Dates: start: 20231209, end: 20240105
  3. VENCLEXTA [Suspect]
     Active Substance: VENETOCLAX
     Indication: Acute myeloid leukaemia
     Dosage: 200 MILLIGRAM
     Route: 048
     Dates: start: 20240113, end: 20240115
  4. SULFAMETHOXAZOLE\TRIMETHOPRIM [Concomitant]
     Active Substance: SULFAMETHOXAZOLE\TRIMETHOPRIM
     Indication: Antibiotic prophylaxis
     Dosage: 800 MG+ 160 MG
     Route: 048
     Dates: start: 20231216, end: 20240203
  5. ACYCLOVIR [Concomitant]
     Active Substance: ACYCLOVIR
     Indication: Antiviral prophylaxis
     Route: 048
     Dates: start: 20231107, end: 20240203
  6. FLUCONAZOLE F [Concomitant]
     Indication: Antifungal prophylaxis
     Dosage: 400 MILLIGRAM
     Route: 048
     Dates: start: 20231205, end: 20240203
  7. FLUCONAZOLE F [Concomitant]
     Indication: Antifungal prophylaxis
     Dosage: 400 MILLIGRAM
     Route: 048
     Dates: start: 20231107, end: 20231121
  8. CUBICIN [Concomitant]
     Active Substance: DAPTOMYCIN
     Indication: Myositis
     Dosage: 500 MILLIGRAM
     Route: 042
     Dates: start: 20231113, end: 20231202
  9. MEROPENEM [Suspect]
     Active Substance: MEROPENEM
     Indication: Bacteraemia
     Route: 042
     Dates: start: 20240109, end: 20240111
  10. MEROPENEM [Suspect]
     Active Substance: MEROPENEM
     Indication: Bacteraemia
     Route: 042
     Dates: start: 20231112, end: 20231203
  11. OMEPRAZOLE [Concomitant]
     Active Substance: OMEPRAZOLE
     Indication: Gastrointestinal disorder prophylaxis
     Dosage: 20 MILLIGRAM
     Route: 048
     Dates: start: 20231216, end: 20240203
  12. FULPHILA [Concomitant]
     Active Substance: PEGFILGRASTIM-JMDB
     Indication: Blood disorder prophylaxis
     Dosage: FREQUENCY TEXT: SINGLE DOSE
     Route: 042
     Dates: start: 20240119, end: 20240119
  13. ATORVASTATIN [Concomitant]
     Active Substance: ATORVASTATIN
     Indication: Dyslipidaemia
     Dosage: 10 MILLIGRAM
     Route: 048
     Dates: start: 2022, end: 20231110
  14. ATORVASTATIN [Concomitant]
     Active Substance: ATORVASTATIN
     Indication: Dyslipidaemia
     Dosage: 20 MILLIGRAM
     Route: 048
     Dates: start: 20231111
  15. ENOXAPARIN [Concomitant]
     Active Substance: ENOXAPARIN
     Indication: Thrombosis prophylaxis
     Dosage: 40 MILLIGRAM
     Route: 058
     Dates: start: 20231107, end: 20231214
  16. FUROSEMIDE [Concomitant]
     Active Substance: FUROSEMIDE
     Indication: Prophylaxis
     Route: 042
     Dates: start: 20231113, end: 20231130
  17. ACETAMINOPHEN [Concomitant]
     Active Substance: ACETAMINOPHEN
     Indication: Antipyresis
     Dosage: FREQUENCY TEXT: AS NEEDED
     Route: 048
     Dates: start: 20231107, end: 20240203
  18. ALLOPURINOL [Concomitant]
     Active Substance: ALLOPURINOL
     Indication: Prophylaxis
     Dosage: 100 MILLIGRAM
     Route: 048
     Dates: start: 20231107, end: 20231130
  19. MORPHINE [Concomitant]
     Active Substance: MORPHINE
     Indication: Pain prophylaxis
     Route: 042
     Dates: start: 20231113, end: 20231205
  20. AZACITIDINE [Concomitant]
     Active Substance: AZACITIDINE
     Indication: Acute myeloid leukaemia
     Dosage: 100 MILLIGRAM
     Route: 058
     Dates: start: 20231209, end: 20231215
  21. AZACITIDINE [Concomitant]
     Active Substance: AZACITIDINE
     Indication: Acute myeloid leukaemia
     Dosage: 100 MILLIGRAM
     Route: 058
     Dates: start: 20240113, end: 20240118
  22. AZACITIDINE [Concomitant]
     Active Substance: AZACITIDINE
     Indication: Acute myeloid leukaemia
     Dosage: 100 MILLIGRAM
     Route: 058
     Dates: start: 20231109, end: 20231115
  23. CYANOCOBALAMIN [Concomitant]
     Active Substance: CYANOCOBALAMIN
     Indication: Vitamin B12 deficiency
     Dosage: 1 MILLIGRAM
     Route: 030
     Dates: start: 20231112, end: 20231119

REACTIONS (15)
  - Intestinal sepsis [Fatal]
  - Food intolerance [Unknown]
  - Pyrexia [Unknown]
  - Vomiting [Unknown]
  - Mucous stools [Unknown]
  - Myositis [Unknown]
  - Abdominal pain [Unknown]
  - Neutropenia [Not Recovered/Not Resolved]
  - Bacteraemia [Recovered/Resolved]
  - Klebsiella infection [Recovered/Resolved]
  - Toxic skin eruption [Recovered/Resolved]
  - Cellulitis [Recovered/Resolved]
  - Gastrointestinal disorder [Unknown]
  - Diarrhoea [Unknown]
  - Abnormal faeces [Unknown]

NARRATIVE: CASE EVENT DATE: 20231117
